FAERS Safety Report 7054393-X (Version None)
Quarter: 2010Q4

REPORT INFORMATION
  Report Type: 
  Country: None (occurrence: None)
  Receive Date: 20101020
  Receipt Date: 20101014
  Transmission Date: 20110411
  Serious: Yes (Hospitalization)
  Sender: FDA-Public Use
  Company Number: US-CEPHALON-2010005437

PATIENT
  Sex: Female
  Weight: 73 kg

DRUGS (22)
  1. PROVIGIL [Suspect]
     Indication: MULTIPLE SCLEROSIS
     Route: 048
     Dates: start: 20070101
  2. CARBAMAZEPINE [Concomitant]
     Dates: start: 20060101
  3. ENALADEX [Concomitant]
     Dates: start: 20070101
  4. ACTOS [Concomitant]
     Dates: start: 20080101
  5. LEVOXYL [Concomitant]
  6. PIZANADINE [Concomitant]
     Dates: start: 20030101
  7. OMEPRAZOLE [Concomitant]
  8. ACETAMINOPHEN [Concomitant]
  9. RISPERIDONE [Concomitant]
     Dates: start: 20060101
  10. PROMETRIUM [Concomitant]
     Dates: start: 19940101
  11. LEXAPRO [Concomitant]
     Dates: start: 20050101
  12. COPAXONE [Concomitant]
     Dates: start: 20060101
  13. ADVAIR DISKUS 100/50 [Concomitant]
     Dates: start: 20070101
  14. SPIRIVA [Concomitant]
     Dates: start: 20060101
  15. ALBUTEROL [Concomitant]
     Dates: start: 20091201
  16. IPRATROPIUM BROMIDE [Concomitant]
     Dates: start: 20100101
  17. VENTOLIN HFA [Concomitant]
     Dates: start: 20100101
  18. FISH OIL [Concomitant]
  19. CALCIUM [Concomitant]
  20. MULTIPLE VITAMIN [Concomitant]
  21. SUPER B COMPLEX [Concomitant]
     Dates: start: 20080101
  22. ASPIRIN [Concomitant]

REACTIONS (2)
  - BRONCHOPNEUMONIA [None]
  - DRUG INEFFECTIVE FOR UNAPPROVED INDICATION [None]
